FAERS Safety Report 5895117-9 (Version None)
Quarter: 2008Q3

REPORT INFORMATION
  Report Type: 
  Country: None (occurrence: None)
  Receive Date: 20080924
  Receipt Date: 20080911
  Transmission Date: 20090109
  Serious: Yes (Hospitalization)
  Sender: FDA-Public Use
  Company Number: BE-PFIZER INC-2008076881

PATIENT
  Age: 45 Year
  Sex: Female

DRUGS (3)
  1. VFEND [Suspect]
  2. VFEND [Suspect]
     Route: 042
  3. FIBRE, DIETARY [Suspect]
     Dosage: FREQ:INTERVAL: CONTINUOUS

REACTIONS (3)
  - GASTRIC DISORDER [None]
  - OESOPHAGEAL MASS [None]
  - STOMACH MASS [None]
